FAERS Safety Report 13281813 (Version 1)
Quarter: 2017Q1

REPORT INFORMATION
  Report Type: Spontaneous
  Country: US (occurrence: US)
  Receive Date: 20170228
  Receipt Date: 20170228
  Transmission Date: 20170428
  Serious: Yes (Death)
  Sender: FDA-Public Use
  Company Number: None

PATIENT
  Age: 61 Year
  Sex: Male

DRUGS (20)
  1. ABILIFY [Concomitant]
     Active Substance: ARIPIPRAZOLE
  2. TENORMIN [Concomitant]
     Active Substance: ATENOLOL
  3. PRED FORTE [Concomitant]
     Active Substance: PREDNISOLONE ACETATE
  4. ASPIRIN. [Concomitant]
     Active Substance: ASPIRIN
  5. PROZAC [Concomitant]
     Active Substance: FLUOXETINE HYDROCHLORIDE
  6. UNSPECIFIED INGREDIENT [Concomitant]
     Active Substance: UNSPECIFIED INGREDIENT
  7. LIPITOR [Concomitant]
     Active Substance: ATORVASTATIN CALCIUM
  8. ACETAMINOPHEN. [Concomitant]
     Active Substance: ACETAMINOPHEN
  9. LOTREL [Concomitant]
     Active Substance: AMLODIPINE BESYLATE\BENAZEPRIL HYDROCHLORIDE
  10. RESTASIS [Concomitant]
     Active Substance: CYCLOSPORINE
  11. HUMULIN N [Concomitant]
     Active Substance: INSULIN HUMAN
  12. SYNTHROID [Concomitant]
     Active Substance: LEVOTHYROXINE SODIUM
  13. PRILOSEC [Concomitant]
     Active Substance: OMEPRAZOLE MAGNESIUM
  14. VITAMIN D3 [Concomitant]
     Active Substance: CHOLECALCIFEROL
  15. LASIX [Concomitant]
     Active Substance: FUROSEMIDE
  16. CYCLOPHOSPHAMIDE. [Suspect]
     Active Substance: CYCLOPHOSPHAMIDE
     Indication: DRUG THERAPY
     Route: 048
     Dates: start: 20170203, end: 20170227
  17. FIBER POWDER [Concomitant]
  18. TOUJEO [Concomitant]
     Active Substance: INSULIN GLARGINE
  19. HUMALOG KWIKPEN [Concomitant]
     Active Substance: INSULIN LISPRO
  20. COLACE [Concomitant]
     Active Substance: DOCUSATE SODIUM

REACTIONS (1)
  - Death [None]

NARRATIVE: CASE EVENT DATE: 20170227
